FAERS Safety Report 5192436-9 (Version None)
Quarter: 2006Q4

REPORT INFORMATION
  Report Type: 
  Country: None (occurrence: None)
  Receive Date: 20061220
  Receipt Date: 20061207
  Transmission Date: 20070319
  Serious: Yes (Other)
  Sender: FDA-Public Use
  Company Number: 2006150998

PATIENT
  Age: 68 Year
  Sex: Male

DRUGS (4)
  1. SUTENT [Suspect]
     Indication: GASTROINTESTINAL STROMAL TUMOUR
     Dosage: SEE IMAGE
     Dates: start: 20060619, end: 20060716
  2. SUTENT [Suspect]
     Indication: GASTROINTESTINAL STROMAL TUMOUR
     Dosage: SEE IMAGE
     Dates: start: 20060731, end: 20060827
  3. SUTENT [Suspect]
     Indication: GASTROINTESTINAL STROMAL TUMOUR
     Dosage: SEE IMAGE
     Dates: start: 20060911, end: 20061008
  4. GLEEVEC [Suspect]
     Indication: GASTROINTESTINAL STROMAL TUMOUR
     Dosage: (400 MG)
     Dates: start: 20050913, end: 20060501

REACTIONS (4)
  - GASTROINTESTINAL STROMAL TUMOUR [None]
  - RECURRENT CANCER [None]
  - SKIN BURNING SENSATION [None]
  - SKIN EXFOLIATION [None]
